FAERS Safety Report 11986862 (Version 1)
Quarter: 2016Q1

REPORT INFORMATION
  Report Type: Spontaneous
  Country: US (occurrence: US)
  Receive Date: 20160202
  Receipt Date: 20160202
  Transmission Date: 20160526
  Serious: No
  Sender: FDA-Public Use
  Company Number: US-UCBSA-2015001296

PATIENT
  Sex: Female
  Weight: 43.99 kg

DRUGS (3)
  1. VIMPAT [Concomitant]
     Active Substance: LACOSAMIDE
     Indication: PRODUCT USED FOR UNKNOWN INDICATION
     Dosage: 200 MG, 2X/DAY (BID), AM AND PM
     Dates: start: 20101019
  2. DEPAKOTE [Suspect]
     Active Substance: DIVALPROEX SODIUM
     Indication: PRODUCT USED FOR UNKNOWN INDICATION
     Dosage: UNK
  3. KEPPRA [Suspect]
     Active Substance: LEVETIRACETAM
     Indication: SEIZURE
     Dosage: AM AND PM, STARTED AND STOPPED 4 YEARS AGO

REACTIONS (4)
  - Dizziness [Recovered/Resolved]
  - Tremor [Unknown]
  - Somnolence [Recovered/Resolved]
  - Seizure [Recovered/Resolved]
